FAERS Safety Report 12937826 (Version 1)
Quarter: 2016Q4

REPORT INFORMATION
  Report Type: Spontaneous
  Country: RU (occurrence: RU)
  Receive Date: 20161114
  Receipt Date: 20161114
  Transmission Date: 20170207
  Serious: Yes (Other)
  Sender: FDA-Public Use
  Company Number: RU-BAYER-2016-213682

PATIENT
  Age: 25 Year
  Sex: Female

DRUGS (2)
  1. YAZ PLUS [Suspect]
     Active Substance: DROSPIRENONE\ETHINYL ESTRADIOL
     Indication: PROPHYLAXIS
     Dosage: UNK
     Route: 048
  2. YAZ PLUS [Suspect]
     Active Substance: DROSPIRENONE\ETHINYL ESTRADIOL
     Indication: OVARIAN RUPTURE

REACTIONS (2)
  - Product use issue [None]
  - Ovarian rupture [None]
